FAERS Safety Report 8684047 (Version 3)
Quarter: 2012Q4

REPORT INFORMATION
  Report Type: 
  Country: US (occurrence: US)
  Receive Date: 20120726
  Receipt Date: 20121011
  Transmission Date: 20130627
  Serious: Yes (Hospitalization)
  Sender: FDA-Public Use
  Company Number: US-VIROPHARMA INCORPORATED-20120715CINRY3170

PATIENT
  Age: 63 None
  Sex: Male

DRUGS (1)
  1. CINRYZE (C1 ESTERASE INHIBITOR (HUMAN)) [Suspect]
     Indication: HEREDITARY ANGIOEDEMA

REACTIONS (7)
  - Pseudomonas infection [Recovering/Resolving]
  - Bacterial infection [Recovering/Resolving]
  - Device related sepsis [Recovering/Resolving]
  - Product reconstitution issue [Recovered/Resolved]
  - Underdose [Recovered/Resolved]
  - Mental impairment [Not Recovered/Not Resolved]
  - Streptococcal infection [Recovered/Resolved]
